FAERS Safety Report 7156219-2 (Version None)
Quarter: 2010Q4

REPORT INFORMATION
  Report Type: 
  Country: None (occurrence: None)
  Receive Date: 20101214
  Receipt Date: 20101208
  Transmission Date: 20110411
  Serious: Yes (Life-Threatening, Other)
  Sender: FDA-Public Use
  Company Number: US-JNJFOC-20101007696

PATIENT
  Sex: Female
  Weight: 68.04 kg

DRUGS (5)
  1. FENTANYL [Suspect]
     Indication: COMPLEX REGIONAL PAIN SYNDROME
     Dosage: 25 UG/HR + 12.5 UG/HR
     Route: 062
  2. FENTANYL [Suspect]
     Dosage: 25 UG/HR + 12.5 UG/HR
     Route: 062
  3. DURAGESIC-100 [Suspect]
     Indication: COMPLEX REGIONAL PAIN SYNDROME
     Route: 062
  4. DURAGESIC-100 [Suspect]
     Dosage: 25 UG/HR + 12.5 UG/HR
     Route: 062
  5. OTHER THERAPEUTIC PRODUCTS [Concomitant]
     Route: 065

REACTIONS (5)
  - ADVERSE EVENT [None]
  - DRUG EFFECT DECREASED [None]
  - HYPOVENTILATION [None]
  - OVERDOSE [None]
  - WRONG TECHNIQUE IN DRUG USAGE PROCESS [None]
